FAERS Safety Report 13194816 (Version 3)
Quarter: 2017Q2

REPORT INFORMATION
  Report Type: Spontaneous
  Country: US (occurrence: US)
  Receive Date: 20170207
  Receipt Date: 20170526
  Transmission Date: 20170830
  Serious: Yes (Death, Hospitalization)
  Sender: FDA-Public Use
  Company Number: US-CELGENEUS-USA-2017019288

PATIENT
  Age: 82 Year
  Sex: Male
  Weight: 88.53 kg

DRUGS (3)
  1. REVLIMID [Suspect]
     Active Substance: LENALIDOMIDE
     Dosage: 15 MILLIGRAM
     Route: 048
     Dates: start: 20140429, end: 20170103
  2. REVLIMID [Suspect]
     Active Substance: LENALIDOMIDE
     Indication: PLASMA CELL MYELOMA
     Dosage: 25 MILLIGRAM
     Route: 048
     Dates: start: 201402
  3. ELOTUZUMAB. [Concomitant]
     Active Substance: ELOTUZUMAB
     Indication: PRODUCT USED FOR UNKNOWN INDICATION
     Route: 065
     Dates: end: 20161214

REACTIONS (8)
  - Weight decreased [Unknown]
  - Dehydration [Unknown]
  - Pancytopenia [Unknown]
  - Pancytopenia [Fatal]
  - Sepsis [Fatal]
  - Metabolic encephalopathy [Unknown]
  - Pneumonia [Unknown]
  - Bacteraemia [Unknown]

NARRATIVE: CASE EVENT DATE: 201611
